FAERS Safety Report 8088328-8 (Version None)
Quarter: 2012Q1

REPORT INFORMATION
  Report Type: 
  Country: None (occurrence: None)
  Receive Date: 20120128
  Receipt Date: 20110421
  Transmission Date: 20120608
  Serious: No
  Sender: FDA-Public Use
  Company Number: US-ABBOTT-11P-163-0721383-00

PATIENT
  Sex: Male
  Weight: 83.99 kg

DRUGS (3)
  1. HUMIRA [Suspect]
     Indication: HIDRADENITIS
     Dates: start: 20110301, end: 20110301
  2. PREDNISONE TAB [Concomitant]
     Indication: HIDRADENITIS
  3. UNKNOWN INSULIN [Concomitant]
     Indication: DIABETES MELLITUS

REACTIONS (2)
  - SKIN LESION [None]
  - ENTEROCOCCUS TEST POSITIVE [None]
